FAERS Safety Report 8795976 (Version 2)
Quarter: 2012Q4

REPORT INFORMATION
  Report Type: 
  Country: LT (occurrence: LT)
  Receive Date: 20120920
  Receipt Date: 20120928
  Transmission Date: 20130627
  Serious: Yes (Hospitalization, Other)
  Sender: FDA-Public Use
  Company Number: LT-JNJFOC-20120906754

PATIENT
  Age: 47 Year
  Sex: Female
  Weight: 75 kg

DRUGS (12)
  1. DOXORUBICIN [Suspect]
     Indication: UTERINE CANCER
     Dosage: third cycle, cumulative dose 340 mg/m2, total dose 900 mg/m2
     Route: 042
  2. DOXORUBICIN [Suspect]
     Indication: UTERINE CANCER
     Dosage: first cycle
     Route: 042
  3. DOXORUBICIN [Suspect]
     Indication: UTERINE CANCER
     Dosage: second cycle
     Route: 042
  4. DOXORUBICIN [Suspect]
     Indication: BREAST CANCER
     Dosage: third cycle, cumulative dose 340 mg/m2, total dose 900 mg/m2
     Route: 042
  5. DOXORUBICIN [Suspect]
     Indication: BREAST CANCER
     Dosage: first cycle
     Route: 042
  6. DOXORUBICIN [Suspect]
     Indication: BREAST CANCER
     Dosage: second cycle
     Route: 042
  7. CYCLOPHOSPHAMIDE [Suspect]
     Indication: UTERINE CANCER
     Route: 065
  8. CYCLOPHOSPHAMIDE [Suspect]
     Indication: UTERINE CANCER
     Route: 065
  9. CYCLOPHOSPHAMIDE [Suspect]
     Indication: BREAST CANCER
     Route: 065
  10. CYCLOPHOSPHAMIDE [Suspect]
     Indication: BREAST CANCER
     Route: 065
  11. 5-FLUOROURACIL [Suspect]
     Indication: BREAST CANCER
     Route: 065
  12. RADIOTHERAPY [Suspect]
     Indication: UTERINE CANCER
     Dosage: for small pelvis-uterus lodge, in total 69 Gy: distance telegammaatherapy 44 Gy, brachytherapy 25 Gy
     Route: 065

REACTIONS (2)
  - Cardiac failure congestive [Recovered/Resolved]
  - Multi-organ failure [Recovered/Resolved]
